FAERS Safety Report 20990462 (Version 3)
Quarter: 2022Q4

REPORT INFORMATION
  Report Type: Report from Study
  Country: CA (occurrence: CA)
  Receive Date: 20220622
  Receipt Date: 20221208
  Transmission Date: 20230112
  Serious: Yes (Other)
  Sender: FDA-Public Use
  Company Number: CA-JNJFOC-20210429297

PATIENT
  Age: 47 Year
  Sex: Male

DRUGS (3)
  1. SIMPONI [Suspect]
     Active Substance: GOLIMUMAB
     Indication: Psoriatic arthropathy
     Dosage: STRENGTH = 50 MG, LAST ADMINISTERED DATE 23-MAY-2019
     Route: 058
     Dates: start: 20190523
  2. SIMPONI [Suspect]
     Active Substance: GOLIMUMAB
     Route: 058
     Dates: start: 20210513
  3. NAPROXEN [Suspect]
     Active Substance: NAPROXEN
     Indication: Product used for unknown indication

REACTIONS (7)
  - Face oedema [Recovering/Resolving]
  - Psoriatic arthropathy [Not Recovered/Not Resolved]
  - Weight increased [Unknown]
  - Urticaria [Recovered/Resolved]
  - Off label use [Unknown]
  - Product use issue [Unknown]
  - Oral mucosal blistering [Unknown]

NARRATIVE: CASE EVENT DATE: 20200101
